FAERS Safety Report 7125822-8 (Version None)
Quarter: 2010Q4

REPORT INFORMATION
  Report Type: 
  Country: None (occurrence: None)
  Receive Date: 20101129
  Receipt Date: 20101122
  Transmission Date: 20110411
  Serious: Yes (Other)
  Sender: FDA-Public Use
  Company Number: D0069524A

PATIENT
  Sex: Female
  Weight: 69 kg

DRUGS (2)
  1. VIANI FORTE [Suspect]
     Indication: ASTHMA
     Dosage: 550MCG TWICE PER DAY
     Route: 055
     Dates: start: 20060101, end: 20100101
  2. SERETIDE FORTE [Suspect]
     Indication: ASTHMA
     Dosage: 550MCG TWICE PER DAY
     Route: 055
     Dates: start: 20060101, end: 20100101

REACTIONS (2)
  - NASAL CONGESTION [None]
  - WEIGHT INCREASED [None]
